FAERS Safety Report 7578507-8 (Version None)
Quarter: 2011Q2

REPORT INFORMATION
  Report Type: 
  Country: None (occurrence: None)
  Receive Date: 20110628
  Receipt Date: 20110621
  Transmission Date: 20111010
  Serious: Yes (Hospitalization)
  Sender: FDA-Public Use
  Company Number: US-ABBOTT-11P-163-0734288-00

PATIENT
  Sex: Female
  Weight: 81.72 kg

DRUGS (11)
  1. HUMIRA [Suspect]
     Indication: RHEUMATOID ARTHRITIS
     Dates: end: 20100101
  2. GABAPENTIN [Concomitant]
     Indication: PAIN
  3. BENTYL [Concomitant]
     Indication: GASTRIC DISORDER
  4. COGENTIN [Concomitant]
     Indication: AGGRESSION
  5. DEPAKOTE [Concomitant]
     Indication: AFFECTIVE DISORDER
  6. CRYSTALLINE VIT B12 INJ [Concomitant]
     Indication: VITAMIN SUPPLEMENTATION
  7. SINGULAIR [Concomitant]
     Indication: HYPERSENSITIVITY
  8. LUNESTA [Concomitant]
     Indication: SLEEP DISORDER THERAPY
  9. SYNTHROID [Concomitant]
     Indication: HYPOTHYROIDISM
  10. AMITIZA [Concomitant]
     Indication: CONSTIPATION
  11. OMEPRAZOLE [Concomitant]
     Indication: GASTRIC DISORDER

REACTIONS (12)
  - CHEST PAIN [None]
  - OXYGEN SATURATION DECREASED [None]
  - FEELING ABNORMAL [None]
  - ARTHRALGIA [None]
  - LOSS OF CONSCIOUSNESS [None]
  - SLUGGISHNESS [None]
  - DYSURIA [None]
  - NAUSEA [None]
  - GASTROINTESTINAL SOUNDS ABNORMAL [None]
  - RENAL FAILURE [None]
  - HEADACHE [None]
  - MIGRAINE [None]
